FAERS Safety Report 4573961-8 (Version None)
Quarter: 2005Q1

REPORT INFORMATION
  Report Type: 
  Country: None (occurrence: None)
  Receive Date: 20050204
  Receipt Date: 20050120
  Transmission Date: 20050727
  Serious: Yes (Hospitalization)
  Sender: FDA-Public Use
  Company Number: 8007031

PATIENT
  Age: 37 Year
  Sex: Male

DRUGS (10)
  1. KEPPRA [Suspect]
     Indication: CONVULSION
     Dosage: PO
     Route: 048
     Dates: start: 20040401, end: 20040401
  2. KEPPRA [Suspect]
     Indication: CONVULSION
     Dosage: 1000 MG 2/D PO
     Route: 048
     Dates: start: 20040401
  3. COUMADIN [Suspect]
     Indication: CEREBROVASCULAR ACCIDENT
     Dosage: PO
     Route: 048
     Dates: start: 20030901, end: 20040101
  4. COUMADIN [Suspect]
     Indication: CEREBROVASCULAR ACCIDENT
     Dosage: PO
     Route: 048
     Dates: start: 20040101
  5. LOVENOX [Concomitant]
  6. DILANTIN [Concomitant]
  7. ATIVAN [Concomitant]
  8. LEVAQUIN [Concomitant]
  9. FOSPHENYTOIN ^PARKE DAVIS^ [Concomitant]
  10. VALIUM [Concomitant]

REACTIONS (14)
  - ABDOMINAL PAIN UPPER [None]
  - COMA [None]
  - DRUG INTERACTION [None]
  - ELECTROENCEPHALOGRAM ABNORMAL [None]
  - GRAND MAL CONVULSION [None]
  - HAEMORRHAGIC DIATHESIS [None]
  - INTERNATIONAL NORMALISED RATIO DECREASED [None]
  - INTERNATIONAL NORMALISED RATIO INCREASED [None]
  - LUNG INFILTRATION [None]
  - NOSOCOMIAL INFECTION [None]
  - PNEUMONIA [None]
  - STOMACH DISCOMFORT [None]
  - TREATMENT NONCOMPLIANCE [None]
  - WHITE BLOOD CELL COUNT INCREASED [None]
